FAERS Safety Report 5353190-0 (Version None)
Quarter: 2007Q2

REPORT INFORMATION
  Report Type: 
  Country: None (occurrence: None)
  Receive Date: 20070608
  Receipt Date: 20070529
  Transmission Date: 20071010
  Serious: Yes (Hospitalization)
  Sender: FDA-Public Use
  Company Number: 234330K07USA

PATIENT
  Age: 60 Year
  Sex: Female
  Weight: 63.5036 kg

DRUGS (3)
  1. REBIF [Suspect]
     Indication: MULTIPLE SCLEROSIS
     Dosage: 44 MCG, 3 IN 1 WEEKS, SUBCUTANEOUS
     Route: 058
     Dates: start: 20051128
  2. ATENOLOL (ANTENOLOL) [Concomitant]
  3. LISINOPRIL (LISINOPRIL/00894001/) [Concomitant]

REACTIONS (3)
  - FALL [None]
  - FOOT FRACTURE [None]
  - WHEELCHAIR USER [None]
